FAERS Safety Report 14976654 (Version 1)
Quarter: 2018Q2

REPORT INFORMATION
  Report Type: Spontaneous
  Country: JP (occurrence: JP)
  Receive Date: 20180605
  Receipt Date: 20180605
  Transmission Date: 20180711
  Serious: Yes (Other)
  Sender: FDA-Public Use
  Company Number: JP-GILEAD-2018-0342423

PATIENT

DRUGS (4)
  1. HARVONI [Suspect]
     Active Substance: LEDIPASVIR\SOFOSBUVIR
     Indication: CHRONIC HEPATITIS C
     Dosage: UNK
     Route: 065
  2. LULLAN [Concomitant]
     Active Substance: PEROSPIRONE HYDROCHLORIDE
  3. ETHYL LOFLAZEPATE [Concomitant]
     Active Substance: ETHYL LOFLAZEPATE
  4. MERCAZOLE                          /00022901/ [Concomitant]
     Active Substance: METHIMAZOLE
     Dosage: UNK
     Dates: start: 2017

REACTIONS (9)
  - Cough [Unknown]
  - Productive cough [Unknown]
  - Haemoptysis [Unknown]
  - Emphysema [Unknown]
  - Pyrexia [Unknown]
  - Lung infection [Unknown]
  - Dysphonia [Unknown]
  - Nausea [Unknown]
  - Malaise [Unknown]
